FAERS Safety Report 10816566 (Version 1)
Quarter: 2015Q1

REPORT INFORMATION
  Report Type: Report from Study
  Country: US (occurrence: US)
  Receive Date: 20150218
  Receipt Date: 20150218
  Transmission Date: 20150721
  Serious: Yes (Other)
  Sender: FDA-Public Use
  Company Number: US-ABBVIE-14K-163-1289683-00

PATIENT
  Sex: Female

DRUGS (3)
  1. HUMIRA [Suspect]
     Active Substance: ADALIMUMAB
     Dosage: ONCE
  2. HUMIRA [Suspect]
     Active Substance: ADALIMUMAB
     Indication: ANKYLOSING SPONDYLITIS
  3. HUMIRA [Suspect]
     Active Substance: ADALIMUMAB

REACTIONS (7)
  - Drug effect incomplete [Unknown]
  - Drug administered in wrong device [Unknown]
  - Wrong device dispensed [Unknown]
  - Injection site pain [Unknown]
  - Hysterectomy [Not Recovered/Not Resolved]
  - Connective tissue disorder [Unknown]
  - Animal bite [Unknown]
